FAERS Safety Report 7760491-5 (Version None)
Quarter: 2011Q3

REPORT INFORMATION
  Report Type: 
  Country: None (occurrence: None)
  Receive Date: 20110919
  Receipt Date: 20110909
  Transmission Date: 20111222
  Serious: Yes (Death)
  Sender: FDA-Public Use
  Company Number: IT-MPIJNJ-2011-04215

PATIENT

DRUGS (2)
  1. DEXAMETHASONE [Suspect]
     Indication: AMYLOIDOSIS
  2. VELCADE [Suspect]
     Indication: AMYLOIDOSIS
     Dosage: UNK
     Dates: start: 20081101

REACTIONS (1)
  - DEATH [None]
